FAERS Safety Report 14262762 (Version 1)
Quarter: 2017Q4

REPORT INFORMATION
  Report Type: Report from Study
  Country: FR (occurrence: FR)
  Receive Date: 20171208
  Receipt Date: 20171208
  Transmission Date: 20180321
  Serious: Yes (Other)
  Sender: FDA-Public Use
  Company Number: FR-ACTELION-A-CH2017-161527

PATIENT
  Age: 66 Year
  Sex: Male
  Weight: 84 kg

DRUGS (5)
  1. UPTRAVI [Suspect]
     Active Substance: SELEXIPAG
     Indication: PULMONARY ARTERIAL HYPERTENSION
     Dosage: 400 ?G, BID
     Route: 048
     Dates: start: 20171019
  2. UPTRAVI [Suspect]
     Active Substance: SELEXIPAG
     Dosage: 200 ?G, BID
     Route: 048
     Dates: start: 20171012
  3. TADALAFIL [Concomitant]
     Active Substance: TADALAFIL
     Indication: PULMONARY ARTERIAL HYPERTENSION
  4. UPTRAVI [Suspect]
     Active Substance: SELEXIPAG
     Dosage: 200 ?G, BID
     Route: 048
     Dates: start: 20171026, end: 20171107
  5. AMBRISENTAN [Concomitant]
     Active Substance: AMBRISENTAN
     Indication: PULMONARY ARTERIAL HYPERTENSION

REACTIONS (16)
  - Nausea [Recovered/Resolved]
  - Walking disability [Unknown]
  - Pulmonary veno-occlusive disease [Unknown]
  - Oedema peripheral [Unknown]
  - Sinusitis [Unknown]
  - Myalgia [Unknown]
  - Fatigue [Unknown]
  - Nasal congestion [Unknown]
  - General physical health deterioration [Unknown]
  - Insomnia [Unknown]
  - Headache [Unknown]
  - Decreased appetite [Recovered/Resolved]
  - Faeces soft [Recovered/Resolved]
  - Localised oedema [Unknown]
  - Chest pain [Recovered/Resolved]
  - Epistaxis [Not Recovered/Not Resolved]

NARRATIVE: CASE EVENT DATE: 20171012
